FAERS Safety Report 9467616 (Version 1)
Quarter: 2013Q3

REPORT INFORMATION
  Report Type: Spontaneous
  Country: US (occurrence: US)
  Receive Date: 20130821
  Receipt Date: 20130821
  Transmission Date: 20140515
  Serious: Yes (Death, Other)
  Sender: FDA-Public Use
  Company Number: US-RANBAXY-2013US-72301

PATIENT
  Age: 62 Year
  Sex: Female

DRUGS (2)
  1. PAROXETINE [Suspect]
     Indication: ANXIETY
     Dosage: 10 MG, DAILY
     Route: 065
  2. ZOLPIDEM [Interacting]
     Indication: INSOMNIA
     Dosage: 10 MG NIGHTLY
     Route: 065

REACTIONS (5)
  - Major depression [Unknown]
  - Delirium [Unknown]
  - Homicide [Unknown]
  - Drug interaction [Unknown]
  - Intentional overdose [Unknown]
